FAERS Safety Report 8412015-7 (Version None)
Quarter: 2012Q2

REPORT INFORMATION
  Report Type: 
  Country: None (occurrence: None)
  Receive Date: 20120605
  Receipt Date: 20120530
  Transmission Date: 20120825
  Serious: Yes (Death, Hospitalization, Other)
  Sender: FDA-Public Use
  Company Number: US-PFIZER INC-2012074749

PATIENT
  Sex: Male

DRUGS (1)
  1. CHANTIX [Suspect]
     Indication: EX-TOBACCO USER
     Dosage: TITRATION AND CONTINUATION PACKS
     Route: 048
     Dates: start: 20080901, end: 20110801

REACTIONS (6)
  - COMPLETED SUICIDE [None]
  - MANIA [None]
  - HALLUCINATION [None]
  - AGGRESSION [None]
  - PSYCHOTIC DISORDER [None]
  - PARANOIA [None]
